FAERS Safety Report 9684799 (Version 2)
Quarter: 2014Q1

REPORT INFORMATION
  Report Type: Report from Study
  Country: BR (occurrence: BR)
  Receive Date: 20131112
  Receipt Date: 20140219
  Transmission Date: 20141002
  Serious: Yes (Other)
  Sender: FDA-Public Use
  Company Number: PHHY2013BR125769

PATIENT
  Age: 53 Year
  Sex: Female
  Weight: 57 kg

DRUGS (4)
  1. GILENYA [Suspect]
     Indication: MULTIPLE SCLEROSIS
     Dosage: 1 DF, QD
     Route: 048
     Dates: start: 201308
  2. Q10 [Concomitant]
     Dosage: 3 U, QD
     Route: 048
     Dates: start: 20090129
  3. OMEGA 3 [Concomitant]
     Indication: MULTIPLE SCLEROSIS
     Dosage: 1 MG, TID
     Route: 048
     Dates: start: 20090129
  4. SINVASTAMED [Concomitant]
     Indication: HYPERLIPIDAEMIA

REACTIONS (11)
  - Ischaemic stroke [Not Recovered/Not Resolved]
  - Haemorrhagic stroke [Not Recovered/Not Resolved]
  - Effusion [Unknown]
  - Limb discomfort [Not Recovered/Not Resolved]
  - Gait disturbance [Not Recovered/Not Resolved]
  - Dysphonia [Recovering/Resolving]
  - Cognitive disorder [Not Recovered/Not Resolved]
  - Fatigue [Unknown]
  - Weight decreased [Unknown]
  - Thyroid disorder [Unknown]
  - Stress [Unknown]
